FAERS Safety Report 21973664 (Version 1)
Quarter: 2023Q1

REPORT INFORMATION
  Report Type: Spontaneous
  Country: IT (occurrence: IT)
  Receive Date: 20230209
  Receipt Date: 20230209
  Transmission Date: 20230417
  Serious: Yes (Death, Other)
  Sender: FDA-Public Use
  Company Number: IT-009507513-2301ITA007901

PATIENT
  Age: 72 Year
  Sex: Female

DRUGS (3)
  1. CYCLOPHOSPHAMIDE [Suspect]
     Active Substance: CYCLOPHOSPHAMIDE
     Indication: Breast cancer female
     Dosage: 600 MILLIGRAM/SQ. METER, Q3W, TOTAL DAILY DOSE
     Route: 042
     Dates: start: 20221215, end: 20221215
  2. KEYTRUDA [Suspect]
     Active Substance: PEMBROLIZUMAB
     Indication: Breast cancer female
     Dosage: 200 MG, Q3W
     Route: 042
     Dates: start: 20221215, end: 20221215
  3. DOXORUBICIN [Suspect]
     Active Substance: DOXORUBICIN
     Indication: Breast cancer female
     Dosage: 60 MILLIGRAM/SQ. METER, Q3W, TOTAL DAILY DOSE
     Route: 042
     Dates: start: 20221215, end: 20221215

REACTIONS (10)
  - Multiple organ dysfunction syndrome [Fatal]
  - Sepsis [Fatal]
  - Pyrexia [Fatal]
  - Leukopenia [Unknown]
  - Febrile neutropenia [Unknown]
  - Thrombocytopenia [Unknown]
  - Escherichia test positive [Unknown]
  - Cough [Unknown]
  - Malaise [Unknown]
  - General physical health deterioration [Unknown]

NARRATIVE: CASE EVENT DATE: 20221223
